FAERS Safety Report 9659293 (Version 1)
Quarter: 2013Q4

REPORT INFORMATION
  Report Type: Spontaneous
  Country: US (occurrence: US)
  Receive Date: 20131031
  Receipt Date: 20131031
  Transmission Date: 20140711
  Serious: No
  Sender: FDA-Public Use
  Company Number: US-JNJFOC-20131015386

PATIENT
  Sex: Female

DRUGS (2)
  1. FENTANYL TRANSDERMAL SYSTEM [Suspect]
     Indication: BACK PAIN
     Route: 062
  2. FENTANYL TRANSDERMAL SYSTEM [Suspect]
     Indication: BACK PAIN
     Route: 062

REACTIONS (4)
  - Drug ineffective [Recovered/Resolved]
  - Wrong technique in drug usage process [Unknown]
  - Product quality issue [Unknown]
  - Drug dose omission [Recovering/Resolving]
